FAERS Safety Report 17543470 (Version 1)
Quarter: 2020Q1

REPORT INFORMATION
  Report Type: Spontaneous
  Country: HU (occurrence: HU)
  Receive Date: 20200316
  Receipt Date: 20200316
  Transmission Date: 20200409
  Serious: Yes (Other)
  Sender: FDA-Public Use
  Company Number: HU-ROCHE-2566414

PATIENT
  Age: 17 Year
  Sex: Male

DRUGS (4)
  1. HALOPERIDOL. [Suspect]
     Active Substance: HALOPERIDOL
     Indication: CATATONIA
  2. HALOPERIDOL. [Suspect]
     Active Substance: HALOPERIDOL
     Indication: SCHIZOPHRENIA
     Route: 065
  3. CLONAZEPAM. [Suspect]
     Active Substance: CLONAZEPAM
     Indication: CATATONIA
  4. CLONAZEPAM. [Suspect]
     Active Substance: CLONAZEPAM
     Indication: SCHIZOPHRENIA
     Route: 065

REACTIONS (6)
  - Gait inability [Recovered/Resolved]
  - Condition aggravated [Recovering/Resolving]
  - Auditory nerve disorder [Recovering/Resolving]
  - Waxy flexibility [Recovering/Resolving]
  - Psychomotor retardation [Recovering/Resolving]
  - Musculoskeletal stiffness [Recovering/Resolving]
